FAERS Safety Report 26140230 (Version 1)
Quarter: 2025Q4

REPORT INFORMATION
  Report Type: Spontaneous
  Country: US (occurrence: None)
  Receive Date: 20251209
  Receipt Date: 20251209
  Transmission Date: 20260117
  Serious: Yes (Other)
  Sender: FDA-CTU
  Company Number: None

PATIENT
  Age: 32 Year
  Sex: Female
  Weight: 76.5 kg

DRUGS (1)
  1. TIRZEPATIDE [Suspect]
     Active Substance: TIRZEPATIDE
     Indication: Weight control
     Dosage: OTHER QUANTITY : 1 INJECTION(S);?OTHER FREQUENCY : ONCE WEEKLY;
     Route: 030
     Dates: start: 20250601, end: 20250725

REACTIONS (7)
  - Product dispensing error [None]
  - Depression [None]
  - Weight increased [None]
  - Insomnia [None]
  - Mental disorder [None]
  - Socioeconomic precarity [None]
  - Victim of abuse [None]

NARRATIVE: CASE EVENT DATE: 20250615
